FAERS Safety Report 25339526 (Version 3)
Quarter: 2025Q3

REPORT INFORMATION
  Report Type: Spontaneous
  Country: EU (occurrence: EU)
  Receive Date: 20250521
  Receipt Date: 20250825
  Transmission Date: 20251021
  Serious: Yes (Hospitalization)
  Sender: CELLTRION
  Company Number: EU-CELLTRION INC.-2025GR014291

PATIENT

DRUGS (9)
  1. ADALIMUMAB [Suspect]
     Active Substance: ADALIMUMAB
     Indication: Erythrodermic psoriasis
     Route: 065
  2. ADALIMUMAB [Suspect]
     Active Substance: ADALIMUMAB
     Indication: Psoriasis
  3. INFLIXIMAB [Suspect]
     Active Substance: INFLIXIMAB
     Indication: Erythrodermic psoriasis
  4. METHOTREXATE SODIUM [Suspect]
     Active Substance: METHOTREXATE SODIUM
     Indication: Erythrodermic psoriasis
  5. CYCLOSPORINE [Suspect]
     Active Substance: CYCLOSPORINE
     Indication: Erythrodermic psoriasis
  6. ACITRETIN [Suspect]
     Active Substance: ACITRETIN
     Indication: Erythrodermic psoriasis
  7. BRODALUMAB [Suspect]
     Active Substance: BRODALUMAB
     Indication: Erythrodermic psoriasis
  8. SECUKINUMAB [Suspect]
     Active Substance: SECUKINUMAB
     Indication: Erythrodermic psoriasis
  9. METHOTREXATE [Concomitant]
     Active Substance: METHOTREXATE

REACTIONS (4)
  - Condition aggravated [Unknown]
  - Erythrodermic psoriasis [Unknown]
  - Off label use [Unknown]
  - Drug ineffective [Unknown]
